FAERS Safety Report 7124967-6 (Version None)
Quarter: 2010Q4

REPORT INFORMATION
  Report Type: 
  Country: None (occurrence: None)
  Receive Date: 20101129
  Receipt Date: 20101123
  Transmission Date: 20110411
  Serious: Yes (Hospitalization, Other)
  Sender: FDA-Public Use
  Company Number: US-ROXANE LABORATORIES, INC.-2010-RO-01176RO

PATIENT
  Sex: Male
  Weight: 110 kg

DRUGS (10)
  1. PREDNISONE [Suspect]
     Indication: PROSTATE CANCER METASTATIC
     Dosage: 10 MG
     Route: 048
     Dates: start: 20090805
  2. CIXUTUMUMAB [Suspect]
     Indication: PROSTATE CANCER METASTATIC
     Route: 042
     Dates: start: 20090805
  3. MITOXANTRONE [Suspect]
     Indication: PROSTATE CANCER METASTATIC
     Route: 042
     Dates: start: 20090805
  4. ACETAMINOPHEN AND HYDROCODONE BITARTRATE [Concomitant]
  5. LISINOPRIL AND HYDROCHLOROTHIAZIDE [Concomitant]
     Indication: HYPERTENSION
  6. PROCHLORPERAZINE [Concomitant]
  7. SENNOSIDE A PLUS B CALCIUM [Concomitant]
  8. TRIMETHOPRIM + SULFAMETHOXAZOLE [Concomitant]
  9. CALCIUM CHLORIDE [Concomitant]
  10. VITAMIN D [Concomitant]

REACTIONS (6)
  - BACK PAIN [None]
  - ELECTROCARDIOGRAM QT PROLONGED [None]
  - ELECTROCARDIOGRAM T WAVE ABNORMAL [None]
  - MALIGNANT NEOPLASM PROGRESSION [None]
  - PROSTATE CANCER [None]
  - SYNCOPE [None]
